FAERS Safety Report 25889416 (Version 1)
Quarter: 2025Q4

REPORT INFORMATION
  Report Type: Spontaneous
  Country: EU (occurrence: EU)
  Receive Date: 20251007
  Receipt Date: 20251007
  Transmission Date: 20260117
  Serious: Yes (Other)
  Sender: ABBVIE
  Company Number: EU-ABBVIE-6484109

PATIENT
  Age: 59 Year
  Sex: Male

DRUGS (7)
  1. VENETOCLAX [Suspect]
     Active Substance: VENETOCLAX
     Indication: Acute myeloid leukaemia
     Dosage: CYCLE II?LAST ADMIN DATE 2025
     Route: 048
     Dates: start: 202501
  2. VENETOCLAX [Suspect]
     Active Substance: VENETOCLAX
     Indication: Acute myeloid leukaemia
     Dosage: D1-D14 Q28
     Route: 048
     Dates: start: 202412
  3. VENETOCLAX [Suspect]
     Active Substance: VENETOCLAX
     Indication: Acute myeloid leukaemia
     Route: 048
     Dates: start: 202503
  4. AZACITIDINE [Suspect]
     Active Substance: AZACITIDINE
     Indication: Product used for unknown indication
     Dosage: CYCLE II
     Route: 065
     Dates: start: 202501
  5. AZACITIDINE [Suspect]
     Active Substance: AZACITIDINE
     Indication: Product used for unknown indication
     Dosage: CYCLE III
     Route: 065
     Dates: start: 202503
  6. AZACITIDINE [Suspect]
     Active Substance: AZACITIDINE
     Indication: Product used for unknown indication
     Dosage: D1-D7?75 MG/M? D1-D7
     Route: 065
     Dates: start: 202412
  7. PEGFILGRASTIM [Concomitant]
     Active Substance: PEGFILGRASTIM
     Indication: Product used for unknown indication
     Dates: start: 202503

REACTIONS (5)
  - Pancytopenia [Unknown]
  - Febrile neutropenia [Unknown]
  - Influenza [Unknown]
  - Chronic myeloid leukaemia [Unknown]
  - Dysplasia [Unknown]

NARRATIVE: CASE EVENT DATE: 20240101
